FAERS Safety Report 9249813 (Version 1)
Quarter: 2013Q2

REPORT INFORMATION
  Report Type: Spontaneous
  Country: DK (occurrence: FR)
  Receive Date: 20130423
  Receipt Date: 20130423
  Transmission Date: 20140414
  Serious: Yes (Hospitalization)
  Sender: FDA-Public Use
  Company Number: FR-FRI-1000044573

PATIENT
  Age: 54 Year
  Sex: Male

DRUGS (18)
  1. CITALOPRAM [Suspect]
     Indication: DEPRESSION
     Route: 048
     Dates: start: 20130307, end: 20130315
  2. CORTANCYL [Concomitant]
  3. IDEOS [Concomitant]
  4. INEXIUM [Concomitant]
  5. KARDEGIC [Concomitant]
  6. MOTILIUM [Concomitant]
  7. MYFORTIC [Concomitant]
  8. NEORAL [Concomitant]
  9. TAHOR [Concomitant]
  10. UVEDOSE [Concomitant]
  11. XATRAL [Concomitant]
  12. ZYLORIC [Concomitant]
  13. ARANESP [Concomitant]
  14. DIFFU-K [Concomitant]
  15. CARDENSIEL [Concomitant]
  16. TRIATEC [Concomitant]
  17. LASILIX [Concomitant]
  18. FORLAX [Concomitant]

REACTIONS (2)
  - Abnormal behaviour [Recovered/Resolved]
  - Agitation [Recovered/Resolved]
